FAERS Safety Report 15065461 (Version 1)
Quarter: 2018Q2

REPORT INFORMATION
  Report Type: Spontaneous
  Country: US (occurrence: US)
  Receive Date: 20180626
  Receipt Date: 20180626
  Transmission Date: 20180711
  Serious: Yes (Hospitalization)
  Sender: FDA-Public Use
  Company Number: US-AUROBINDO-AUR-APL-2018-014834

PATIENT
  Age: 27 Year
  Sex: Female

DRUGS (2)
  1. DEXMEDETOMIDINE INJECTION [Suspect]
     Active Substance: DEXMEDETOMIDINE
     Indication: ADRENERGIC SYNDROME
     Dosage: 1.4 MCG/KG/HR
     Route: 042
  2. CLONIDINE 0.1 MG [Suspect]
     Active Substance: CLONIDINE
     Indication: ADRENERGIC SYNDROME
     Dosage: 0.2 MCG/KG/HR
     Route: 065

REACTIONS (3)
  - Heart rate increased [Unknown]
  - Paradoxical drug reaction [Unknown]
  - Blood pressure increased [Unknown]
